FAERS Safety Report 5368823-2 (Version None)
Quarter: 2007Q2

REPORT INFORMATION
  Report Type: 
  Country: None (occurrence: None)
  Receive Date: 20070625
  Receipt Date: 20070614
  Transmission Date: 20071010
  Serious: Yes (Disabling, Other)
  Sender: FDA-Public Use
  Company Number: US-ELI_LILLY_AND_COMPANY-US200703005358

PATIENT
  Age: 53 Year
  Sex: Female

DRUGS (14)
  1. CYMBALTA [Suspect]
     Indication: PAIN
     Dosage: 30 MG, DAILY (1/D)
     Dates: start: 20061101
  2. CYMBALTA [Suspect]
     Dosage: 60 MG, DAILY (1/D)
     Dates: start: 20060101, end: 20070201
  3. CYMBALTA [Suspect]
     Dosage: 30 MG, UNK
     Dates: start: 20070201, end: 20070322
  4. CYMBALTA [Suspect]
     Dosage: 15 MG, UNK
     Dates: start: 20070323
  5. ATENOLOL [Concomitant]
     Indication: PALPITATIONS
  6. CELEBREX [Concomitant]
     Dosage: 200 MG, DAILY (1/D)
  7. XANAX [Concomitant]
     Indication: POST-TRAUMATIC STRESS DISORDER
     Dosage: 0.5 MG, AS NEEDED
  8. ADVAIR DISKUS 100/50 [Concomitant]
     Indication: ASTHMA
     Dosage: UNK, 2/D
  9. FLONASE [Concomitant]
     Indication: NASAL DISORDER
  10. PRILOSEC [Concomitant]
  11. FLEXERIL [Concomitant]
     Indication: SLEEP DISORDER
  12. LYRICA [Concomitant]
  13. ASPIRIN [Concomitant]
  14. CARDIAC THERAPY [Concomitant]

REACTIONS (15)
  - BEDRIDDEN [None]
  - BREAST PAIN [None]
  - DIZZINESS [None]
  - DRUG WITHDRAWAL SYNDROME [None]
  - EXTRASYSTOLES [None]
  - HEART RATE INCREASED [None]
  - HYPERACUSIS [None]
  - MIGRAINE [None]
  - NAUSEA [None]
  - PAIN [None]
  - PALPITATIONS [None]
  - PHOTOPHOBIA [None]
  - RHINITIS [None]
  - THYROID DISORDER [None]
  - WEIGHT DECREASED [None]
